FAERS Safety Report 20885314 (Version 1)
Quarter: 2022Q2

REPORT INFORMATION
  Report Type: Spontaneous
  Country: US (occurrence: None)
  Receive Date: 20220527
  Receipt Date: 20220527
  Transmission Date: 20220721
  Serious: Yes (Hospitalization)
  Sender: FDA-Public Use
  Company Number: None

PATIENT
  Age: 53 Year
  Sex: Male

DRUGS (1)
  1. GRANIX [Suspect]
     Active Substance: TBO-FILGRASTIM
     Dosage: OTHER STRENGTH : 30MCG/0.5ML;?FREQUENCY : DAILY;?
     Route: 058
     Dates: start: 202205

REACTIONS (3)
  - Sepsis [None]
  - Febrile neutropenia [None]
  - T-cell lymphoma [None]

NARRATIVE: CASE EVENT DATE: 20220509
